FAERS Safety Report 9865713 (Version 1)
Quarter: 2014Q1

REPORT INFORMATION
  Report Type: Report from Study
  Country: BR (occurrence: BR)
  Receive Date: 20140203
  Receipt Date: 20140203
  Transmission Date: 20141002
  Serious: Yes (Hospitalization, Other)
  Sender: FDA-Public Use
  Company Number: PHHY2014BR012872

PATIENT
  Age: 49 Year
  Sex: Female
  Weight: 67 kg

DRUGS (3)
  1. FORASEQ [Suspect]
     Indication: ASTHMA
     Dosage: UNK 12/400 UG, QD
  2. FORASEQ [Suspect]
     Dosage: UNK 12/200 UG, QD
  3. BEROTEC [Suspect]
     Dosage: UNK UKN, UNK

REACTIONS (10)
  - Influenza [Unknown]
  - Increased upper airway secretion [Unknown]
  - Dyspnoea [Unknown]
  - Sleep apnoea syndrome [Unknown]
  - Osteoporosis [Unknown]
  - Ventricular hypertrophy [Unknown]
  - Heart rate increased [Unknown]
  - Dizziness [Unknown]
  - Headache [Unknown]
  - Blood pressure increased [Unknown]
